FAERS Safety Report 14344897 (Version 1)
Quarter: 2018Q1

REPORT INFORMATION
  Report Type: Report from Study
  Country: ES (occurrence: ES)
  Receive Date: 20180103
  Receipt Date: 20180103
  Transmission Date: 20180509
  Serious: Yes (Other)
  Sender: FDA-Public Use
  Company Number: ES-ROCHE-2045692

PATIENT
  Sex: Female
  Weight: 75 kg

DRUGS (1)
  1. VEMURAFENIB. [Suspect]
     Active Substance: VEMURAFENIB
     Indication: METASTATIC MALIGNANT MELANOMA
     Dosage: 8 TABLETS, TABLETS IN THE MORNING AND 4 FOR TABLETS IN THE NIGHT; EVERY 12H
     Route: 048
     Dates: start: 2011, end: 2014

REACTIONS (4)
  - Hypertension [Recovered/Resolved]
  - Tachycardia [Recovered/Resolved]
  - Insomnia [Recovered/Resolved]
  - Alopecia [Recovered/Resolved]

NARRATIVE: CASE EVENT DATE: 2013
